FAERS Safety Report 5375893-4 (Version None)
Quarter: 2007Q3

REPORT INFORMATION
  Report Type: 
  Country: None (occurrence: None)
  Receive Date: 20070702
  Receipt Date: 20070621
  Transmission Date: 20080115
  Serious: Yes (Hospitalization)
  Sender: FDA-Public Use
  Company Number: PHHO2007US08847

PATIENT
  Age: 76 Year
  Sex: Female

DRUGS (18)
  1. GLEEVEC [Suspect]
     Indication: GASTROINTESTINAL STROMAL TUMOUR
     Dosage: 300 MG, BID
     Route: 048
     Dates: start: 20070510
  2. GLEEVEC [Suspect]
     Dosage: 200 MG, BID
     Route: 048
     Dates: start: 20070614
  3. GLEEVEC [Suspect]
     Dosage: NO TREATMENT
     Dates: end: 20070613
  4. LAMICTAL [Concomitant]
  5. LIPITOR [Concomitant]
  6. LOTREL [Concomitant]
  7. AMBIEN [Concomitant]
  8. NEXIUM [Concomitant]
  9. METOPROLOL SUCCINATE [Concomitant]
  10. ASPIRIN [Concomitant]
  11. LABETALOL HCL [Concomitant]
  12. TRIAMTEREN [Concomitant]
  13. TOPROL-XL [Concomitant]
  14. TAMBOCOR [Concomitant]
  15. SERTRALINE HYDROCHLORIDE [Concomitant]
  16. NORVASC [Concomitant]
  17. LASIX [Concomitant]
  18. KLOR-CON [Concomitant]

REACTIONS (19)
  - ABDOMINAL PAIN LOWER [None]
  - ANAEMIA [None]
  - ATRIAL FIBRILLATION [None]
  - ATRIAL NATRIURETIC PEPTIDE INCREASED [None]
  - CARDIAC FAILURE CONGESTIVE [None]
  - CARDIAC PACEMAKER INSERTION [None]
  - CHEST DISCOMFORT [None]
  - COUGH [None]
  - DIZZINESS [None]
  - DYSPNOEA [None]
  - FATIGUE [None]
  - HAEMOGLOBIN DECREASED [None]
  - INTRA-ABDOMINAL HAEMATOMA [None]
  - LUNG INFILTRATION [None]
  - PLEURAL EFFUSION [None]
  - PNEUMONITIS [None]
  - POSTNASAL DRIP [None]
  - SICK SINUS SYNDROME [None]
  - SINUS ARREST [None]
